FAERS Safety Report 25150621 (Version 1)
Quarter: 2025Q2

REPORT INFORMATION
  Report Type: Spontaneous
  Country: ES (occurrence: ES)
  Receive Date: 20250402
  Receipt Date: 20250402
  Transmission Date: 20250716
  Serious: Yes (Other)
  Sender: TEVA
  Company Number: ES-TEVA-VS-3314851

PATIENT
  Age: 62 Year
  Sex: Female

DRUGS (1)
  1. COPAXONE [Suspect]
     Active Substance: GLATIRAMER ACETATE
     Indication: Multiple sclerosis
     Route: 065

REACTIONS (4)
  - Shoulder operation [Recovering/Resolving]
  - Bronchitis [Recovered/Resolved]
  - Fall [Recovering/Resolving]
  - Thyroid disorder [Unknown]

NARRATIVE: CASE EVENT DATE: 20241001
